FAERS Safety Report 13069584 (Version 1)
Quarter: 2016Q4

REPORT INFORMATION
  Report Type: Spontaneous
  Country: JP (occurrence: JP)
  Receive Date: 20161228
  Receipt Date: 20161228
  Transmission Date: 20170207
  Serious: Yes (Life-Threatening, Other)
  Sender: FDA-Public Use
  Company Number: JP-TEVA-2016-JP-002786J

PATIENT
  Age: 78 Year
  Sex: Female

DRUGS (14)
  1. AMLODIPINE [Concomitant]
     Active Substance: AMLODIPINE BESYLATE
     Dosage: 5 MILLIGRAM DAILY;
     Route: 048
     Dates: start: 20161126
  2. VALSARTAN. [Concomitant]
     Active Substance: VALSARTAN
     Indication: HYPERTENSION
     Dosage: 40 MILLIGRAM DAILY;
     Route: 048
     Dates: start: 20160823, end: 20160924
  3. ARTIST [Concomitant]
     Active Substance: CARVEDILOL
     Route: 065
     Dates: start: 20160925, end: 20161125
  4. VALSARTAN. [Concomitant]
     Active Substance: VALSARTAN
     Dosage: 40 MILLIGRAM DAILY;
     Route: 048
     Dates: start: 20161126
  5. LASIX [Concomitant]
     Active Substance: FUROSEMIDE
     Route: 065
     Dates: start: 20160925, end: 20161125
  6. AMLODIPINE [Concomitant]
     Active Substance: AMLODIPINE BESYLATE
     Indication: HYPERTENSION
     Dosage: 5 MILLIGRAM DAILY;
     Route: 048
     Dates: start: 20160826, end: 20160924
  7. AZELNIDIPINE [Concomitant]
     Active Substance: AZELNIDIPINE
     Route: 065
     Dates: start: 20160925, end: 20161125
  8. HALFDIGOXIN [Suspect]
     Active Substance: DIGOXIN
     Indication: TACHYCARDIA
     Dosage: .25 MILLIGRAM DAILY;
     Route: 048
     Dates: start: 20160923, end: 20160924
  9. AZILVA [Concomitant]
     Active Substance: AZILSARTAN KAMEDOXOMIL
     Route: 065
     Dates: start: 20160925, end: 20161125
  10. FEBURIC [Concomitant]
     Active Substance: FEBUXOSTAT
     Route: 065
     Dates: start: 20160925, end: 20161125
  11. WARFARIN [Concomitant]
     Active Substance: WARFARIN
     Route: 065
     Dates: start: 20160925, end: 20161125
  12. FERROMIA [Concomitant]
     Active Substance: FERROUS CITRATE
     Route: 065
     Dates: start: 20160925, end: 20161125
  13. DISOPYRAMIDE SUSTAINED RELEASE TABLET 150MG TEVA [Suspect]
     Active Substance: DISOPYRAMIDE
     Indication: ATRIAL FIBRILLATION
     Dosage: 150 MILLIGRAM DAILY;
     Route: 048
     Dates: start: 20160923, end: 20160924
  14. SPIRONOLACTONE. [Concomitant]
     Active Substance: SPIRONOLACTONE
     Route: 065
     Dates: start: 20160925, end: 20161125

REACTIONS (7)
  - Electrocardiogram QT prolonged [Unknown]
  - Renal impairment [Not Recovered/Not Resolved]
  - Loss of consciousness [Recovered/Resolved]
  - Torsade de pointes [Unknown]
  - Hypocalcaemia [Not Recovered/Not Resolved]
  - Hypokalaemia [Not Recovered/Not Resolved]
  - Hypomagnesaemia [Not Recovered/Not Resolved]

NARRATIVE: CASE EVENT DATE: 20160923
